FAERS Safety Report 16823385 (Version 1)
Quarter: 2019Q3

REPORT INFORMATION
  Report Type: Spontaneous
  Country: JP (occurrence: JP)
  Receive Date: 20190918
  Receipt Date: 20190918
  Transmission Date: 20191005
  Serious: Yes (Hospitalization, Other)
  Sender: FDA-Public Use
  Company Number: JP-ACELLA PHARMACEUTICALS, LLC-2074615

PATIENT
  Age: 42 Year
  Sex: Female

DRUGS (2)
  1. LEVETIRACETAM. [Concomitant]
     Active Substance: LEVETIRACETAM
  2. PHENYTOIN SODIUM. [Suspect]
     Active Substance: PHENYTOIN SODIUM
     Indication: OVERDOSE
     Route: 048

REACTIONS (10)
  - Nausea [Recovering/Resolving]
  - Dizziness [Recovering/Resolving]
  - Nystagmus [Recovering/Resolving]
  - Dysarthria [Recovering/Resolving]
  - Vomiting [Recovering/Resolving]
  - Fatigue [Recovering/Resolving]
  - Coma scale abnormal [Recovering/Resolving]
  - Somnolence [Recovered/Resolved]
  - Blood pressure increased [Recovering/Resolving]
  - Muscular weakness [Recovering/Resolving]
